FAERS Safety Report 25141397 (Version 1)
Quarter: 2025Q1

REPORT INFORMATION
  Report Type: Spontaneous
  Country: JP (occurrence: JP)
  Receive Date: 20250331
  Receipt Date: 20250331
  Transmission Date: 20250408
  Serious: Yes (Other)
  Sender: PFIZER
  Company Number: JP-PFIZER INC-202500064337

PATIENT
  Age: 8 Decade
  Sex: Female

DRUGS (3)
  1. SOLU-MEDROL [Suspect]
     Active Substance: METHYLPREDNISOLONE SODIUM SUCCINATE
     Indication: Paraplegia
     Route: 042
  2. SOLU-MEDROL [Suspect]
     Active Substance: METHYLPREDNISOLONE SODIUM SUCCINATE
  3. NALOXONE [Suspect]
     Active Substance: NALOXONE
     Indication: Paraplegia

REACTIONS (4)
  - Altered state of consciousness [Unknown]
  - Muscle tightness [Unknown]
  - Pyrexia [Unknown]
  - Off label use [Unknown]
